FAERS Safety Report 10429902 (Version 2)
Quarter: 2014Q4

REPORT INFORMATION
  Report Type: Spontaneous
  Country: US (occurrence: None)
  Receive Date: 20140805
  Receipt Date: 20141104
  Transmission Date: 20150528
  Serious: Yes (Hospitalization, Other)
  Sender: FDA-Public Use
  Company Number: INS201406-000113

PATIENT
  Age: 50 Year
  Sex: Female
  Weight: 81.64 kg

DRUGS (8)
  1. SUBSYS [Suspect]
     Active Substance: FENTANYL
     Indication: NECK PAIN
     Dates: start: 20130817
  2. SUBSYS [Suspect]
     Active Substance: FENTANYL
     Indication: ARTHRALGIA
     Dates: start: 20130817
  3. SUBSYS [Suspect]
     Active Substance: FENTANYL
     Indication: BACK PAIN
     Dates: start: 20130817
  4. FETZIMA [Suspect]
     Active Substance: LEVOMILNACIPRAN HYDROCHLORIDE
     Indication: DEPRESSION
     Dates: start: 20140428, end: 20140617
  5. FLEXERIL [Concomitant]
     Active Substance: CYCLOBENZAPRINE HYDROCHLORIDE
  6. OPANA [Concomitant]
     Active Substance: OXYMORPHONE HYDROCHLORIDE
  7. VISTARIL [Suspect]
     Active Substance: HYDROXYZINE PAMOATE
     Indication: DEPRESSION
     Dates: start: 20140429
  8. PREVACID [Concomitant]
     Active Substance: LANSOPRAZOLE

REACTIONS (28)
  - Blood pressure increased [None]
  - Vision blurred [None]
  - Dysphagia [None]
  - Lethargy [None]
  - Fall [None]
  - Constipation [None]
  - Vertigo [None]
  - Confusional state [None]
  - Increased upper airway secretion [None]
  - Drug withdrawal syndrome [None]
  - Drug ineffective [None]
  - Skin lesion [None]
  - Off label use [None]
  - Drug dependence [None]
  - Visual impairment [None]
  - Accidental overdose [None]
  - Diplopia [None]
  - Decreased appetite [None]
  - Vomiting [None]
  - Peripheral swelling [None]
  - Back pain [None]
  - Nausea [None]
  - Parosmia [None]
  - Fatigue [None]
  - Pruritus [None]
  - Hallucination [None]
  - Dizziness [None]
  - Dysuria [None]

NARRATIVE: CASE EVENT DATE: 201405
